FAERS Safety Report 23987654 (Version 1)
Quarter: 2024Q2

REPORT INFORMATION
  Report Type: Spontaneous
  Country: FR (occurrence: FR)
  Receive Date: 20240619
  Receipt Date: 20240619
  Transmission Date: 20240716
  Serious: Yes (Hospitalization, Other)
  Sender: FDA-Public Use
  Company Number: None

PATIENT
  Age: 15 Year
  Sex: Female

DRUGS (10)
  1. FLUOXETINE HYDROCHLORIDE [Suspect]
     Active Substance: FLUOXETINE HYDROCHLORIDE
     Indication: Product used for unknown indication
     Dosage: UNK UNK, UNKNOWN (USUAL TREATMENT)
     Route: 048
  2. FLUOXETINE HYDROCHLORIDE [Suspect]
     Active Substance: FLUOXETINE HYDROCHLORIDE
     Dosage: UNK UNK, UNKNOWN
     Route: 048
     Dates: start: 20240323, end: 20240323
  3. TRIMEPRAZINE [Suspect]
     Active Substance: TRIMEPRAZINE
     Indication: Product used for unknown indication
     Dosage: UNK, UNKNOWN  (USUAL TREATMENT)
     Route: 048
  4. TRIMEPRAZINE [Suspect]
     Active Substance: TRIMEPRAZINE
     Dosage: UNK, UNKNOWN
     Route: 048
     Dates: start: 20240323, end: 20240323
  5. AMMONIUM ACETATE [Suspect]
     Active Substance: AMMONIUM ACETATE
     Indication: Product used for unknown indication
     Dosage: UNK UNK, UNKNOWN (USUAL TREATMENT)
     Route: 048
  6. AMMONIUM ACETATE [Suspect]
     Active Substance: AMMONIUM ACETATE
     Dosage: UNK
     Route: 048
     Dates: start: 20240323, end: 20240323
  7. ETHYLMORPHINE HYDROCHLORIDE [Suspect]
     Active Substance: ETHYLMORPHINE HYDROCHLORIDE
     Indication: Product used for unknown indication
     Dosage: UNK, UNKNOWN (USUAL TREATMENT)
     Route: 048
  8. ETHYLMORPHINE HYDROCHLORIDE [Suspect]
     Active Substance: ETHYLMORPHINE HYDROCHLORIDE
     Dosage: UNK, UNKNOWN
     Route: 048
     Dates: start: 20240323, end: 20240323
  9. EPHEDRINE HYDROCHLORIDE [Suspect]
     Active Substance: EPHEDRINE HYDROCHLORIDE
     Indication: Product used for unknown indication
     Dosage: UNK, UNKNOWN (USUAL TREATMENT)
     Route: 048
  10. EPHEDRINE HYDROCHLORIDE [Suspect]
     Active Substance: EPHEDRINE HYDROCHLORIDE
     Dosage: UNK, UNKNOWN
     Route: 048
     Dates: start: 20240323, end: 20240323

REACTIONS (4)
  - Toxicity to various agents [Recovered/Resolved]
  - Seizure [Recovered/Resolved]
  - Substance use disorder [Recovering/Resolving]
  - Malaise [Recovered/Resolved]

NARRATIVE: CASE EVENT DATE: 20240101
